FAERS Safety Report 20154346 (Version 1)
Quarter: 2021Q4

REPORT INFORMATION
  Report Type: Spontaneous
  Country: US (occurrence: US)
  Receive Date: 20211207
  Receipt Date: 20211207
  Transmission Date: 20220303
  Serious: No
  Sender: FDA-Public Use
  Company Number: US-BoehringerIngelheim-2021-BI-142261

PATIENT
  Age: 88 Year
  Sex: Female

DRUGS (1)
  1. STIOLTO RESPIMAT [Suspect]
     Active Substance: OLODATEROL HYDROCHLORIDE\TIOTROPIUM BROMIDE MONOHYDRATE
     Indication: Carcinoid tumour pulmonary
     Dosage: 2 INHALATIONS. ONCE-DAILY, THREE TIMES A WEEK
     Route: 055

REACTIONS (2)
  - Dry throat [Unknown]
  - Off label use [Unknown]
